FAERS Safety Report 9423444 (Version 1)
Quarter: 2013Q3

REPORT INFORMATION
  Report Type: Spontaneous
  Country: US (occurrence: US)
  Receive Date: 20130726
  Receipt Date: 20130726
  Transmission Date: 20140515
  Serious: No
  Sender: FDA-Public Use
  Company Number: US-GALDERMA-US-GDP-12415137

PATIENT
  Age: 12 Year
  Sex: Female
  Weight: 50 kg

DRUGS (7)
  1. DIFFERIN (ADAPALENE) GEL, 0.3% [Suspect]
     Indication: ACNE
     Route: 061
     Dates: start: 20120909
  2. DIFFERIN (ADAPALENE) GEL, 0.3% [Suspect]
     Route: 061
     Dates: start: 2012, end: 2012
  3. CETAPHIL [Suspect]
     Indication: THERAPEUTIC SKIN CARE TOPICAL
     Route: 061
     Dates: start: 2012, end: 201206
  4. SALICYLIC ACID [Suspect]
  5. ALLEGRA [Concomitant]
     Indication: SEASONAL ALLERGY
     Route: 048
  6. NEUTROGENA FACIAL CLEANSER FRAGRANCE-FREE [Concomitant]
     Route: 061
     Dates: start: 2012
  7. NEUTROGENA ALL IN ONE ACNE CONTROL [Concomitant]
     Dates: start: 201209, end: 20120918

REACTIONS (6)
  - Erythema [Recovered/Resolved]
  - Skin exfoliation [Recovered/Resolved]
  - Skin burning sensation [Recovered/Resolved]
  - Pain of skin [Recovered/Resolved]
  - Dry skin [Recovered/Resolved]
  - Skin irritation [Recovered/Resolved]
